FAERS Safety Report 10062734 (Version 1)
Quarter: 2014Q2

REPORT INFORMATION
  Report Type: Spontaneous
  Country: FR (occurrence: FR)
  Receive Date: 20140407
  Receipt Date: 20140407
  Transmission Date: 20141212
  Serious: Yes (Hospitalization)
  Sender: FDA-Public Use
  Company Number: FR-GLAXOSMITHKLINE-B0981235A

PATIENT
  Age: 56 Year
  Sex: Female

DRUGS (12)
  1. ONDANSETRON [Suspect]
     Indication: PROCEDURAL NAUSEA
     Route: 042
     Dates: start: 20130429, end: 20130429
  2. ULTIVA [Suspect]
     Indication: GENERAL ANAESTHESIA
     Route: 042
     Dates: start: 20130429, end: 20130429
  3. TRACRIUM [Suspect]
     Indication: GENERAL ANAESTHESIA
     Route: 042
     Dates: start: 20130429, end: 20130429
  4. KETAMINE [Suspect]
     Indication: GENERAL ANAESTHESIA
     Route: 042
     Dates: start: 20130429, end: 20130429
  5. PARACETAMOL [Suspect]
     Indication: PAIN
     Route: 042
     Dates: start: 20130429, end: 20130429
  6. PROFENID [Suspect]
     Indication: PAIN
     Route: 042
     Dates: start: 20130429, end: 20130429
  7. ACUPAN [Suspect]
     Indication: PAIN
     Route: 042
     Dates: start: 20130429, end: 20130429
  8. DEXAMETHASONE [Suspect]
     Indication: PROCEDURAL NAUSEA
     Route: 042
     Dates: start: 20130429, end: 20130429
  9. DIPRIVAN [Suspect]
     Indication: GENERAL ANAESTHESIA
     Route: 042
     Dates: start: 20130429, end: 20130429
  10. RIFAMYCIN [Suspect]
     Indication: PROPHYLAXIS
     Route: 042
     Dates: start: 20130429, end: 20130429
  11. LEVOTHYROX [Concomitant]
     Indication: PRODUCT USED FOR UNKNOWN INDICATION
     Route: 065
  12. FENOFIBRATE [Concomitant]
     Indication: PRODUCT USED FOR UNKNOWN INDICATION
     Route: 065

REACTIONS (1)
  - Rash macular [Recovered/Resolved]
